FAERS Safety Report 7712169-1 (Version None)
Quarter: 2011Q3

REPORT INFORMATION
  Report Type: 
  Country: None (occurrence: None)
  Receive Date: 20110826
  Receipt Date: 20110815
  Transmission Date: 20111222
  Serious: Yes (Death)
  Sender: FDA-Public Use
  Company Number: US-ACTELION-A-NJ2011-50790

PATIENT

DRUGS (3)
  1. REVATIO [Concomitant]
  2. COUMADIN [Concomitant]
  3. TRACLEER [Suspect]
     Indication: PULMONARY ARTERIAL HYPERTENSION
     Dosage: UNK
     Route: 048
     Dates: start: 20020918

REACTIONS (5)
  - DEATH [None]
  - PYREXIA [None]
  - MALAISE [None]
  - PAIN IN EXTREMITY [None]
  - HAEMOPTYSIS [None]
